FAERS Safety Report 23680234 (Version 1)
Quarter: 2024Q1

REPORT INFORMATION
  Report Type: Spontaneous
  Country: SE (occurrence: SE)
  Receive Date: 20240327
  Receipt Date: 20240327
  Transmission Date: 20240410
  Serious: Yes (Other)
  Sender: FDA-Public Use
  Company Number: None

PATIENT
  Age: 21 Year
  Sex: Male

DRUGS (5)
  1. RISPERDAL [Suspect]
     Active Substance: RISPERIDONE
     Indication: Product used for unknown indication
     Route: 065
     Dates: start: 20240208
  2. VI-SIBLIN S [Concomitant]
     Route: 065
     Dates: start: 20180705
  3. SERTRALINE [Concomitant]
     Active Substance: SERTRALINE HYDROCHLORIDE
     Route: 065
     Dates: start: 20220616
  4. FOLSYRA VITABALANS [Concomitant]
     Route: 065
     Dates: start: 20230706
  5. OLANZAPINE [Concomitant]
     Active Substance: OLANZAPINE
     Route: 065
     Dates: start: 20240208

REACTIONS (4)
  - Obsessive-compulsive disorder [Unknown]
  - Nausea [Unknown]
  - Poor quality sleep [Unknown]
  - Hyperhidrosis [Unknown]

NARRATIVE: CASE EVENT DATE: 20240208
